FAERS Safety Report 18636892 (Version 1)
Quarter: 2020Q4

REPORT INFORMATION
  Report Type: Spontaneous
  Country: US (occurrence: US)
  Receive Date: 20201218
  Receipt Date: 20201218
  Transmission Date: 20210114
  Serious: Yes (Death)
  Sender: FDA-Public Use
  Company Number: US-009507513-2012USA008428

PATIENT
  Age: 57 Year
  Sex: Female

DRUGS (9)
  1. VITAMIN D (UNSPECIFIED) [Suspect]
     Active Substance: VITAMIN D NOS
     Dosage: ROUTE: INGESTION
     Route: 048
  2. HALOPERIDOL. [Suspect]
     Active Substance: HALOPERIDOL
     Dosage: ROUTE: INGESTION
     Route: 048
  3. PROPRANOLOL [Suspect]
     Active Substance: PROPRANOLOL HYDROCHLORIDE
     Dosage: ROUTE: INGESTION
     Route: 048
  4. TRAMADOL HYDROCHLORIDE. [Suspect]
     Active Substance: TRAMADOL HYDROCHLORIDE
     Dosage: ROUTE: INGESTION
     Route: 048
  5. FORMOTEROL FUMARATE [Suspect]
     Active Substance: FORMOTEROL FUMARATE
     Dosage: ROUTE: INGESTION
     Route: 048
  6. REMERON [Suspect]
     Active Substance: MIRTAZAPINE
     Dosage: ROUTE: INGESTION
     Route: 048
  7. BUDESONIDE. [Suspect]
     Active Substance: BUDESONIDE
     Dosage: ROUTE: INGESTION
     Route: 048
  8. NAPROXEN. [Suspect]
     Active Substance: NAPROXEN
     Dosage: ROUTE: INGESTION
     Route: 048
  9. MELOXICAM. [Suspect]
     Active Substance: MELOXICAM
     Dosage: ROUTE: INGESTION
     Route: 048

REACTIONS (1)
  - Suspected suicide [Fatal]
